FAERS Safety Report 6320260-X (Version None)
Quarter: 2009Q3

REPORT INFORMATION
  Report Type: 
  Country: None (occurrence: None)
  Receive Date: 20090822
  Receipt Date: 20081022
  Transmission Date: 20100115
  Serious: No
  Sender: FDA-Public Use
  Company Number: US-ABBOTT-08P-163-0484372-00

PATIENT
  Sex: Female

DRUGS (4)
  1. NIASPAN [Suspect]
     Indication: BLOOD TRIGLYCERIDES INCREASED
     Dosage: 1-500/20 MG PILL DAILY AT BEDTIME
     Dates: start: 20080929, end: 20081015
  2. ESOMEPRAZOLE MAGNESIUM [Concomitant]
     Indication: DRUG USE FOR UNKNOWN INDICATION
  3. GALENIC /DORZOLAMIDE/TIMOLOL/ [Concomitant]
     Indication: DRUG USE FOR UNKNOWN INDICATION
  4. BIMATOPROST [Concomitant]
     Indication: DRUG USE FOR UNKNOWN INDICATION

REACTIONS (3)
  - FLUSHING [None]
  - FREQUENT BOWEL MOVEMENTS [None]
  - HEADACHE [None]
